FAERS Safety Report 9671977 (Version 1)
Quarter: 2013Q4

REPORT INFORMATION
  Report Type: Spontaneous
  Country: PT (occurrence: PT)
  Receive Date: 20131106
  Receipt Date: 20131106
  Transmission Date: 20140711
  Serious: Yes (Other)
  Sender: FDA-Public Use
  Company Number: PT-ABBVIE-13P-130-1163557-00

PATIENT
  Age: 63 Year
  Sex: Female

DRUGS (26)
  1. HUMIRA [Suspect]
     Indication: RHEUMATOID ARTHRITIS
     Route: 058
     Dates: start: 20121010
  2. FOLIC ACID [Concomitant]
     Indication: PRODUCT USED FOR UNKNOWN INDICATION
     Route: 048
     Dates: start: 20101019
  3. ISONIAZID [Concomitant]
     Indication: PRODUCT USED FOR UNKNOWN INDICATION
     Dosage: DAILY
     Route: 048
     Dates: start: 20120901
  4. FENOFIBRATE [Concomitant]
     Indication: DYSLIPIDAEMIA
     Route: 048
     Dates: start: 20110204
  5. LEVOTHYROXINE SODIUM [Concomitant]
     Indication: HYPOTHYROIDISM
     Route: 048
     Dates: start: 2010
  6. FERROUS SULFATE [Concomitant]
     Indication: ANAEMIA
     Dates: start: 20101019
  7. FLUNARIZINE [Concomitant]
     Indication: MIGRAINE
     Dates: start: 2010
  8. INDAPAMIDE [Concomitant]
     Indication: HYPERTENSION
     Route: 048
     Dates: start: 2010
  9. ALENDRONIC ACID/CHOLECALCIFEROL [Concomitant]
     Indication: PRODUCT USED FOR UNKNOWN INDICATION
     Dates: start: 2010, end: 2012
  10. BRIMONIDINE TARTRATE/TIMOLOL MALEATE [Concomitant]
     Indication: GLAUCOMA
     Dosage: EYE DROPS
     Dates: start: 2008
  11. BRINZOLAMIDE [Concomitant]
     Indication: GLAUCOMA
     Dates: start: 2010
  12. BRINZOLAMIDE [Concomitant]
  13. OMEPRAZOLE [Concomitant]
     Indication: PRODUCT USED FOR UNKNOWN INDICATION
     Route: 048
     Dates: start: 200909
  14. METFORMIN HYDROCHLORIDE [Concomitant]
     Indication: DIABETES MELLITUS
     Dates: start: 2009, end: 2012
  15. ESTAZOLAM [Concomitant]
     Indication: INSOMNIA
     Dates: start: 201205
  16. SITAGLIPTINA/METFORMINA [Concomitant]
     Indication: DIABETES MELLITUS
     Dosage: (METFORMIN HYDROCHLORIDE, SITAGLIPTIN PHOSPHATE)
     Dates: start: 2012
  17. DULOXETINE [Concomitant]
     Indication: DEPRESSION
     Dates: start: 201205
  18. PREGABALIN [Concomitant]
     Indication: PAIN
     Route: 048
     Dates: start: 20120531
  19. ALPRAZOLAM [Concomitant]
     Indication: ANXIETY
     Dates: start: 201205
  20. METHOTREXATE [Concomitant]
     Indication: RHEUMATOID ARTHRITIS
     Route: 048
     Dates: start: 20111017
  21. HYDROXYCHLOROQUINE SULFATE [Concomitant]
     Indication: RHEUMATOID ARTHRITIS
     Route: 048
     Dates: start: 20120630
  22. ASCORBIC ACID [Concomitant]
     Indication: PAIN
     Route: 048
     Dates: start: 2011
  23. OXYBUTYNIN HYDROCHLORIDE [Concomitant]
     Indication: URGE INCONTINENCE
     Route: 048
     Dates: start: 2012
  24. PREDNISOLONE [Concomitant]
     Indication: RHEUMATOID ARTHRITIS
     Route: 048
  25. IRON SULFATE [Concomitant]
     Indication: ANAEMIA
     Dates: start: 20101019, end: 2012
  26. FLUNARIZINE [Concomitant]
     Indication: MIGRAINE
     Dates: start: 2010, end: 2012

REACTIONS (5)
  - Acute coronary syndrome [Recovered/Resolved]
  - Myocardial ischaemia [Unknown]
  - Nausea [Unknown]
  - Malaise [Unknown]
  - Vomiting [Unknown]
